FAERS Safety Report 12001948 (Version 1)
Quarter: 2016Q1

REPORT INFORMATION
  Report Type: Spontaneous
  Country: BR (occurrence: BR)
  Receive Date: 20160204
  Receipt Date: 20160204
  Transmission Date: 20160526
  Serious: Yes (Death, Hospitalization, Other)
  Sender: FDA-Public Use
  Company Number: BR-JNJFOC-20160202811

PATIENT
  Age: 91 Year
  Sex: Male

DRUGS (3)
  1. XARELTO [Suspect]
     Active Substance: RIVAROXABAN
     Indication: CEREBROVASCULAR ACCIDENT PROPHYLAXIS
     Route: 048
     Dates: start: 20140829
  2. XARELTO [Suspect]
     Active Substance: RIVAROXABAN
     Indication: ATRIAL FLUTTER
     Route: 048
     Dates: start: 20140829
  3. PROPAFENONE. [Concomitant]
     Active Substance: PROPAFENONE
     Route: 065

REACTIONS (9)
  - Sepsis [Unknown]
  - Urinary tract infection [Unknown]
  - Dizziness [Unknown]
  - Joint injury [Unknown]
  - Delirium [Unknown]
  - Septic shock [Fatal]
  - Fall [Unknown]
  - Gingival bleeding [Unknown]
  - Confusional state [Unknown]
